FAERS Safety Report 7342582-6 (Version None)
Quarter: 2011Q1

REPORT INFORMATION
  Report Type: 
  Country: None (occurrence: None)
  Receive Date: 20110310
  Receipt Date: 20100119
  Transmission Date: 20110831
  Serious: No
  Sender: FDA-Public Use
  Company Number: US-BAYER-201011855NA

PATIENT
  Sex: Female

DRUGS (1)
  1. MIRENA [Suspect]
     Dosage: 20 ?G/D, CONT

REACTIONS (4)
  - BREAST TENDERNESS [None]
  - BREAST PAIN [None]
  - ABDOMINAL PAIN [None]
  - ARTHRALGIA [None]
